FAERS Safety Report 12441748 (Version 5)
Quarter: 2020Q3

REPORT INFORMATION
  Report Type: Spontaneous
  Country: CA (occurrence: CA)
  Receive Date: 20160607
  Receipt Date: 20200917
  Transmission Date: 20201102
  Serious: Yes (Hospitalization, Other)
  Sender: FDA-Public Use
  Company Number: CA-ROCHE-1770763

PATIENT
  Age: 63 Year
  Sex: Female
  Weight: 57 kg

DRUGS (14)
  1. XOLAIR [Suspect]
     Active Substance: OMALIZUMAB
     Route: 058
     Dates: start: 20130320
  2. XOLAIR [Suspect]
     Active Substance: OMALIZUMAB
     Route: 065
     Dates: start: 20160426
  3. SPIRIVA [Concomitant]
     Active Substance: TIOTROPIUM BROMIDE MONOHYDRATE
     Indication: PRODUCT USED FOR UNKNOWN INDICATION
     Dosage: UNK UNK, QD
     Route: 065
  4. XOLAIR [Suspect]
     Active Substance: OMALIZUMAB
     Route: 058
     Dates: start: 20090917
  5. XOLAIR [Suspect]
     Active Substance: OMALIZUMAB
     Route: 058
  6. XOLAIR [Suspect]
     Active Substance: OMALIZUMAB
     Route: 058
     Dates: start: 20150310
  7. XOLAIR [Suspect]
     Active Substance: OMALIZUMAB
     Indication: ASTHMA
     Route: 058
     Dates: start: 20061024
  8. XOLAIR [Suspect]
     Active Substance: OMALIZUMAB
     Route: 058
     Dates: start: 2015
  9. XOLAIR [Suspect]
     Active Substance: OMALIZUMAB
     Route: 058
  10. SYMBICORT [Concomitant]
     Active Substance: BUDESONIDE\FORMOTEROL FUMARATE DIHYDRATE
     Indication: PRODUCT USED FOR UNKNOWN INDICATION
     Dosage: UNK UNK, QID
     Route: 065
  11. SINGULAIR [Concomitant]
     Active Substance: MONTELUKAST SODIUM
     Indication: PRODUCT USED FOR UNKNOWN INDICATION
     Dosage: UNK UNK, QD
     Route: 065
  12. XOLAIR [Suspect]
     Active Substance: OMALIZUMAB
     Route: 058
     Dates: start: 20090402
  13. XOLAIR [Suspect]
     Active Substance: OMALIZUMAB
     Route: 058
     Dates: start: 20181016
  14. XOLAIR [Suspect]
     Active Substance: OMALIZUMAB
     Route: 058
     Dates: start: 20180724

REACTIONS (18)
  - Hypoventilation [Unknown]
  - Wheezing [Unknown]
  - Tendonitis [Unknown]
  - Sinusitis [Recovered/Resolved]
  - Weight decreased [Unknown]
  - Off label use [Unknown]
  - Nasopharyngitis [Unknown]
  - Rash [Unknown]
  - Tissue injury [Unknown]
  - Productive cough [Unknown]
  - Cough [Recovered/Resolved]
  - Road traffic accident [Unknown]
  - Pneumonia [Recovered/Resolved]
  - Aphonia [Unknown]
  - Middle ear effusion [Unknown]
  - Ear infection [Recovered/Resolved]
  - Arthralgia [Unknown]
  - Body temperature decreased [Unknown]

NARRATIVE: CASE EVENT DATE: 2013
